FAERS Safety Report 8070007-4 (Version None)
Quarter: 2012Q1

REPORT INFORMATION
  Report Type: 
  Country: None (occurrence: None)
  Receive Date: 20120125
  Receipt Date: 20120123
  Transmission Date: 20120608
  Serious: No
  Sender: FDA-Public Use
  Company Number: US-JNJFOC-20120110227

PATIENT
  Sex: Female
  Weight: 124.29 kg

DRUGS (1)
  1. FENTANYL-100 [Suspect]
     Indication: NEUROPATHY PERIPHERAL
     Route: 062
     Dates: start: 20110115, end: 20110116

REACTIONS (5)
  - TREATMENT NONCOMPLIANCE [None]
  - ASTHENIA [None]
  - DYSPNOEA [None]
  - DRUG PRESCRIBING ERROR [None]
  - HEART RATE DECREASED [None]
